FAERS Safety Report 10173539 (Version 1)
Quarter: 2014Q2

REPORT INFORMATION
  Report Type: Spontaneous
  Country: US (occurrence: None)
  Receive Date: 20140514
  Receipt Date: 20140514
  Transmission Date: 20141212
  Serious: Yes (Life-Threatening, Disabling)
  Sender: FDA-Public Use
  Company Number: None

PATIENT
  Age: 60 Year
  Sex: Female
  Weight: 103.42 kg

DRUGS (1)
  1. ZOLPIDEM [Suspect]
     Indication: SLEEP STUDY
     Dosage: 1 PILL 1/2 TO 1 AS NEEDED, TAKEN BY MOUTH
     Route: 048

REACTIONS (4)
  - Atrial fibrillation [None]
  - Palpitations [None]
  - Fear [None]
  - Supraventricular extrasystoles [None]
